FAERS Safety Report 9857811 (Version 9)
Quarter: 2014Q2

REPORT INFORMATION
  Report Type: Spontaneous
  Country: CA (occurrence: CA)
  Receive Date: 20140131
  Receipt Date: 20140610
  Transmission Date: 20141212
  Serious: Yes (Other)
  Sender: FDA-Public Use
  Company Number: CA-ROCHE-1342249

PATIENT
  Age: 41 Year
  Sex: Female

DRUGS (5)
  1. HERCEPTIN [Suspect]
     Indication: BREAST CANCER
     Route: 042
     Dates: start: 200608, end: 201008
  2. KADCYLA [Suspect]
     Indication: BREAST CANCER
     Route: 042
     Dates: start: 20140312
  3. PREDNISONE [Concomitant]
  4. OMEPRAZOLE [Concomitant]
  5. FOLIC ACID [Concomitant]

REACTIONS (17)
  - Vulval cancer [Unknown]
  - Pneumocentesis [Unknown]
  - Pericardial drainage [Unknown]
  - Infusion related reaction [Unknown]
  - Dyspepsia [Unknown]
  - Vomiting [Not Recovered/Not Resolved]
  - Malignant neoplasm progression [Unknown]
  - Musculoskeletal chest pain [Unknown]
  - Hypertension [Unknown]
  - Anxiety [Unknown]
  - Influenza like illness [Recovered/Resolved]
  - Oral candidiasis [Unknown]
  - Pain [Unknown]
  - Fatigue [Not Recovered/Not Resolved]
  - Diarrhoea [Recovered/Resolved]
  - Chills [Unknown]
  - Paraesthesia [Unknown]
